FAERS Safety Report 4288931-7 (Version None)
Quarter: 2004Q1

REPORT INFORMATION
  Report Type: 
  Country: None (occurrence: None)
  Receive Date: 20040205
  Receipt Date: 20040128
  Transmission Date: 20041129
  Serious: Yes (Life-Threatening)
  Sender: FDA-Public Use
  Company Number: 2003AP04296

PATIENT
  Age: 84 Year
  Sex: Male

DRUGS (11)
  1. ZOLADEX [Suspect]
     Indication: PROSTATE CANCER
     Dosage: 3.6 MG Q4WK SQ
     Route: 058
     Dates: start: 20031107, end: 20031107
  2. CASODEX [Suspect]
     Indication: PROSTATE CANCER
     Dosage: 80 MG DAILY PO
     Route: 048
     Dates: start: 20031107, end: 20031120
  3. CEROCRAL [Concomitant]
  4. BUFFERIN [Concomitant]
  5. RHYTHMY [Concomitant]
  6. MUCOSTA [Concomitant]
  7. NO MATCH [Concomitant]
  8. ETODOLAC [Concomitant]
  9. HONVAN [Concomitant]
  10. MS CONTIN [Concomitant]
  11. PL [Concomitant]

REACTIONS (5)
  - INTERSTITIAL LUNG DISEASE [None]
  - METASTASES TO BONE [None]
  - PNEUMONIA [None]
  - RESPIRATORY FAILURE [None]
  - SOMNOLENCE [None]
